FAERS Safety Report 5504467-7 (Version None)
Quarter: 2007Q4

REPORT INFORMATION
  Report Type: 
  Country: None (occurrence: None)
  Receive Date: 20071101
  Receipt Date: 20071022
  Transmission Date: 20080405
  Serious: Yes (Other)
  Sender: FDA-Public Use
  Company Number: GB-PFIZER INC-2007089773

PATIENT
  Age: 66 Year
  Sex: Male

DRUGS (7)
  1. LIPITOR [Suspect]
     Dates: start: 20000101, end: 20060101
  2. ACETYLSALICYLIC ACID SRT [Concomitant]
     Route: 048
  3. ATENOLOL [Concomitant]
  4. TAMSULOSIN HYDROCHLORIDE [Concomitant]
  5. TRANDOLAPRIL [Concomitant]
     Route: 048
  6. ISOSORBIDE MONONITRATE [Concomitant]
     Route: 048
  7. LEVOTHYROXINE SODIUM [Concomitant]
     Indication: HYPOTHYROIDISM
     Route: 048

REACTIONS (1)
  - HYPNAGOGIC HALLUCINATION [None]
